FAERS Safety Report 8647215 (Version 2)
Quarter: 2012Q4

REPORT INFORMATION
  Report Type: 
  Country: US (occurrence: US)
  Receive Date: 20120703
  Receipt Date: 20120830
  Transmission Date: 20130627
  Serious: Yes (Other)
  Sender: FDA-Public Use
  Company Number: US-BAYER-2012-064370

PATIENT
  Age: 22 Year
  Sex: Female

DRUGS (1)
  1. MIRENA [Suspect]
     Indication: CONTRACEPTION
     Dosage: Daily dose 20 ?g
     Route: 015
     Dates: start: 201204, end: 20120724

REACTIONS (8)
  - Weight increased [None]
  - Uterine cervical pain [None]
  - Vulvovaginal discomfort [None]
  - Dizziness [None]
  - Nausea [None]
  - Menstruation delayed [Not Recovered/Not Resolved]
  - Pelvic inflammatory disease [None]
  - Abdominal pain [Not Recovered/Not Resolved]
